FAERS Safety Report 9367675 (Version 1)
Quarter: 2013Q2

REPORT INFORMATION
  Report Type: Spontaneous
  Country: US (occurrence: US)
  Receive Date: 20130625
  Receipt Date: 20130625
  Transmission Date: 20140414
  Serious: No
  Sender: FDA-Public Use
  Company Number: US-009507513-1306USA012400

PATIENT
  Age: 15 Year
  Sex: Female

DRUGS (1)
  1. COPPERTONE KIDS [Suspect]
     Indication: PRODUCT USED FOR UNKNOWN INDICATION
     Dosage: UNK, ONCE
     Route: 061
     Dates: start: 20130601

REACTIONS (1)
  - Skin discolouration [Not Recovered/Not Resolved]
